FAERS Safety Report 19106349 (Version 13)
Quarter: 2022Q1

REPORT INFORMATION
  Report Type: Report from Study
  Country: US (occurrence: US)
  Receive Date: 20210407
  Receipt Date: 20220209
  Transmission Date: 20220424
  Serious: Yes (Hospitalization, Other)
  Sender: FDA-Public Use
  Company Number: US-BOEHRINGERINGELHEIM-2020-BI-049738

PATIENT
  Age: 63 Year
  Sex: Female

DRUGS (8)
  1. OFEV [Suspect]
     Active Substance: NINTEDANIB
     Indication: Idiopathic pulmonary fibrosis
     Route: 048
     Dates: start: 20170815
  2. OFEV [Suspect]
     Active Substance: NINTEDANIB
     Route: 048
     Dates: start: 20210428
  3. FISH OIL [Concomitant]
     Active Substance: FISH OIL
     Indication: Product used for unknown indication
     Route: 065
  4. LIPITOR [Concomitant]
     Active Substance: ATORVASTATIN CALCIUM
     Indication: Product used for unknown indication
     Route: 065
  5. XANAX [Concomitant]
     Active Substance: ALPRAZOLAM
     Indication: Product used for unknown indication
     Route: 065
  6. ASPIRIN CHW [Concomitant]
     Indication: Product used for unknown indication
     Route: 065
  7. SOMA [Concomitant]
     Active Substance: CARISOPRODOL
     Indication: Product used for unknown indication
     Route: 065
  8. VITAMIN E [Concomitant]
     Active Substance: .ALPHA.-TOCOPHEROL
     Indication: Product used for unknown indication
     Route: 065

REACTIONS (22)
  - Pneumonia [Recovered/Resolved]
  - Oxygen saturation decreased [Recovered/Resolved]
  - Oxygen saturation decreased [Not Recovered/Not Resolved]
  - Idiopathic pulmonary fibrosis [Unknown]
  - Peripheral swelling [Unknown]
  - Thrombosis [Unknown]
  - Atrial fibrillation [Unknown]
  - Joint fluid drainage [Unknown]
  - Contusion [Unknown]
  - Diarrhoea [Not Recovered/Not Resolved]
  - Fall [Recovered/Resolved]
  - Fall [Unknown]
  - Thrombosis [Unknown]
  - Constipation [Unknown]
  - Infection [Unknown]
  - Stress [Not Recovered/Not Resolved]
  - Contusion [Unknown]
  - Oedema peripheral [Unknown]
  - Lower limb fracture [Not Recovered/Not Resolved]
  - Meniscus injury [Not Recovered/Not Resolved]
  - Joint injury [Not Recovered/Not Resolved]
  - Lower limb fracture [Unknown]

NARRATIVE: CASE EVENT DATE: 20170815
